FAERS Safety Report 12832249 (Version 1)
Quarter: 2016Q4

REPORT INFORMATION
  Report Type: Spontaneous
  Country: US (occurrence: US)
  Receive Date: 20161010
  Receipt Date: 20161010
  Transmission Date: 20170207
  Serious: Yes (Death, Other)
  Sender: FDA-Public Use
  Company Number: US-ASTELLAS-2016US039714

PATIENT
  Age: 86 Year
  Sex: Male

DRUGS (1)
  1. MYRBETRIQ [Suspect]
     Active Substance: MIRABEGRON
     Indication: MICTURITION URGENCY
     Route: 048
     Dates: start: 20151023, end: 20160919

REACTIONS (4)
  - Pulmonary fibrosis [Unknown]
  - Chronic obstructive pulmonary disease [Unknown]
  - Death [Fatal]
  - Intentional product misuse [Unknown]

NARRATIVE: CASE EVENT DATE: 20160919
